FAERS Safety Report 14553974 (Version 2)
Quarter: 2018Q1

REPORT INFORMATION
  Report Type: Spontaneous
  Country: ES (occurrence: ES)
  Receive Date: 20180220
  Receipt Date: 20180227
  Transmission Date: 20180509
  Serious: Yes (Other)
  Sender: FDA-Public Use
  Company Number: ES-JNJFOC-20180220771

PATIENT
  Age: 58 Year
  Sex: Female
  Weight: 80.4 kg

DRUGS (6)
  1. SERTRALINE [Concomitant]
     Active Substance: SERTRALINE HYDROCHLORIDE
     Route: 065
  2. ESOMEPRAZOLE [Concomitant]
     Active Substance: ESOMEPRAZOLE
     Route: 065
  3. TREVICTA [Suspect]
     Active Substance: PALIPERIDONE PALMITATE
     Indication: SCHIZOPHRENIA
     Dosage: LEFT DELTOID
     Route: 030
     Dates: start: 20170718, end: 201710
  4. FLATORIL [Concomitant]
     Active Substance: CLEBOPRIDE MALATE\DIMETHICONE
     Route: 065
  5. TREVICTA [Suspect]
     Active Substance: PALIPERIDONE PALMITATE
     Indication: SCHIZOPHRENIA
     Dosage: RIGHT DELTOID
     Route: 030
     Dates: start: 20170418
  6. BIPERIDEN [Concomitant]
     Active Substance: BIPERIDEN
     Route: 065

REACTIONS (4)
  - Cellulitis [Unknown]
  - Injection site induration [Recovered/Resolved]
  - Hyperprolactinaemia [Unknown]
  - Injection site infection [Recovered/Resolved]

NARRATIVE: CASE EVENT DATE: 2017
